FAERS Safety Report 4423136-8 (Version None)
Quarter: 2004Q3

REPORT INFORMATION
  Report Type: 
  Country: None (occurrence: None)
  Receive Date: 20040805
  Receipt Date: 20040723
  Transmission Date: 20050211
  Serious: Yes (Hospitalization)
  Sender: FDA-Public Use
  Company Number: US-JNJFOC-20040706482

PATIENT
  Age: 63 Year
  Sex: Female

DRUGS (21)
  1. INFLIXIMAB (INFLIXIMAB, RECOMBINANT) LYOPHILIZED POWDER [Suspect]
     Indication: RHEUMATOID ARTHRITIS
     Dosage: INTRAVENOUS
     Route: 042
     Dates: start: 20001004, end: 20011001
  2. ENBREL [Concomitant]
  3. ARAVA [Concomitant]
  4. BEXTRA [Concomitant]
  5. TRANXENE (CLORAZEPATA DIPOTASSIUM) [Concomitant]
  6. MAXIDE (DYAZIDE) [Concomitant]
  7. LASIX [Concomitant]
  8. FORTEO [Concomitant]
  9. SINGULAIR [Concomitant]
  10. SEREVENT [Concomitant]
  11. COMBIVENT (COBIVENT) INHALATION [Concomitant]
  12. PREDNISONE [Concomitant]
  13. FLONASE [Concomitant]
  14. ZYRTEC [Concomitant]
  15. TARKA (UDRAMIL) [Concomitant]
  16. HYOSCYAMINE (HYOSCYAMINE) [Concomitant]
  17. DARVOCET [Concomitant]
  18. IBUPROFEN [Concomitant]
  19. MECLIZINE [Concomitant]
  20. CYTOTEC 9MISOPROSTOL) [Concomitant]
  21. FLEXORIL(CYCLOBENZAPRINE HYDROCHLORIDE) [Concomitant]

REACTIONS (9)
  - BLOOD ALBUMIN DECREASED [None]
  - BLOOD POTASSIUM DECREASED [None]
  - BLOOD SODIUM DECREASED [None]
  - BRONCHITIS ACUTE [None]
  - DIARRHOEA [None]
  - HAEMATOCRIT DECREASED [None]
  - HAEMOGLOBIN DECREASED [None]
  - HYPOVOLAEMIA [None]
  - VOMITING [None]
